FAERS Safety Report 21772967 (Version 2)
Quarter: 2023Q1

REPORT INFORMATION
  Report Type: Spontaneous
  Country: ES (occurrence: ES)
  Receive Date: 20221223
  Receipt Date: 20230217
  Transmission Date: 20230417
  Serious: Yes (Hospitalization)
  Sender: FDA-Public Use
  Company Number: ES-JNJFOC-20221242491

PATIENT
  Age: 48 Year
  Sex: Female
  Weight: 48.5 kg

DRUGS (1)
  1. SIMPONI [Suspect]
     Active Substance: GOLIMUMAB
     Indication: Rheumatoid arthritis
     Route: 058
     Dates: start: 20120101, end: 20221101

REACTIONS (4)
  - Metastases to lung [Not Recovered/Not Resolved]
  - Clear cell renal cell carcinoma [Not Recovered/Not Resolved]
  - Asthenia [Unknown]
  - Palpitations [Unknown]

NARRATIVE: CASE EVENT DATE: 20221101
